FAERS Safety Report 16808960 (Version 1)
Quarter: 2019Q3

REPORT INFORMATION
  Report Type: Spontaneous
  Country: US (occurrence: US)
  Receive Date: 20190916
  Receipt Date: 20190916
  Transmission Date: 20191005
  Serious: Yes (Other)
  Sender: FDA-Public Use
  Company Number: US-STRIDES ARCOLAB LIMITED-2019SP008106

PATIENT

DRUGS (2)
  1. IBUPROFEN. [Suspect]
     Active Substance: IBUPROFEN
     Indication: PRODUCT USED FOR UNKNOWN INDICATION
     Dosage: UNK
     Route: 065
  2. ACETYLSALICYLIC ACID [Suspect]
     Active Substance: ASPIRIN
     Indication: PRODUCT USED FOR UNKNOWN INDICATION
     Dosage: UNK
     Route: 065

REACTIONS (11)
  - Oral mucosal erythema [Unknown]
  - Oral mucosa erosion [Unknown]
  - Lip erosion [Unknown]
  - Lip erythema [Unknown]
  - Genital blister [Unknown]
  - Conjunctivitis [Unknown]
  - Oral mucosal blistering [Unknown]
  - Stevens-Johnson syndrome [Unknown]
  - Genital erythema [Unknown]
  - Genital erosion [Unknown]
  - Lip blister [Unknown]
